FAERS Safety Report 15318054 (Version 1)
Quarter: 2018Q3

REPORT INFORMATION
  Report Type: Spontaneous
  Country: US (occurrence: US)
  Receive Date: 20180817
  Receipt Date: 20180817
  Transmission Date: 20181010
  Serious: Yes (Hospitalization)
  Sender: FDA-Public Use
  Company Number: None

PATIENT
  Age: 50 Year
  Sex: Male
  Weight: 93 kg

DRUGS (1)
  1. CLINDAMYCIN/DEXTROSE [Suspect]
     Active Substance: CLINDAMYCIN
     Indication: RASH
     Route: 042
     Dates: start: 20180615, end: 20180620

REACTIONS (1)
  - Rash [None]

NARRATIVE: CASE EVENT DATE: 20180620
